FAERS Safety Report 25950433 (Version 1)
Quarter: 2025Q4

REPORT INFORMATION
  Report Type: Spontaneous
  Country: KR (occurrence: KR)
  Receive Date: 20251023
  Receipt Date: 20251023
  Transmission Date: 20260118
  Serious: Yes (Hospitalization, Other)
  Sender: ABBVIE
  Company Number: KR-TAKEDA-2025TUS073764

PATIENT
  Age: 8 Year
  Sex: Female

DRUGS (2)
  1. LEUPLIN [Suspect]
     Active Substance: LEUPROLIDE ACETATE
     Indication: Precocious puberty
     Dosage: 3.75 MILLIGRAM, LEUPLIN DPS/LAST ADMIN DATE: 2025
     Route: 065
     Dates: start: 20250326
  2. LEUPLIN [Suspect]
     Active Substance: LEUPROLIDE ACETATE
     Dosage: 3.75 MILLIGRAM, LEUPLIN DPS/LAST ADMIN DATE: 2025
     Route: 065
     Dates: start: 20250423

REACTIONS (7)
  - Injection site oedema [Recovering/Resolving]
  - Injection site abscess [Recovering/Resolving]
  - Injection site erythema [Recovering/Resolving]
  - Injection site reaction [Recovering/Resolving]
  - Injection site necrosis [Recovering/Resolving]
  - Pyrexia [Recovering/Resolving]
  - Excessive granulation tissue [Recovering/Resolving]

NARRATIVE: CASE EVENT DATE: 20250616
